FAERS Safety Report 13950541 (Version 2)
Quarter: 2018Q2

REPORT INFORMATION
  Report Type: Spontaneous
  Country: FR (occurrence: FR)
  Receive Date: 20170908
  Receipt Date: 20180504
  Transmission Date: 20180711
  Serious: Yes (Other)
  Sender: FDA-Public Use
  Company Number: FR-MERCK KGAA-2025759

PATIENT
  Age: 55 Year
  Sex: Female
  Weight: 75 kg

DRUGS (2)
  1. NOVOTHYROX [Suspect]
     Active Substance: LEVOTHYROXINE SODIUM
     Indication: THYROIDECTOMY
     Route: 048
     Dates: start: 201704
  2. NOVOTHYROX [Suspect]
     Active Substance: LEVOTHYROXINE SODIUM
     Route: 048
     Dates: start: 201707

REACTIONS (12)
  - Hypothyroidism [Not Recovered/Not Resolved]
  - Asthenia [Not Recovered/Not Resolved]
  - Vision blurred [Not Recovered/Not Resolved]
  - Depression [Not Recovered/Not Resolved]
  - Dyspnoea [Not Recovered/Not Resolved]
  - Myalgia [Not Recovered/Not Resolved]
  - Blood thyroid stimulating hormone decreased [Not Recovered/Not Resolved]
  - Arrhythmia [Not Recovered/Not Resolved]
  - Vertigo [Not Recovered/Not Resolved]
  - Pyrexia [Not Recovered/Not Resolved]
  - Hot flush [Not Recovered/Not Resolved]
  - Abdominal pain upper [Not Recovered/Not Resolved]

NARRATIVE: CASE EVENT DATE: 2017
